FAERS Safety Report 6896297-9 (Version None)
Quarter: 2010Q3

REPORT INFORMATION
  Report Type: 
  Country: None (occurrence: None)
  Receive Date: 20100802
  Receipt Date: 20100727
  Transmission Date: 20110219
  Serious: Yes (Hospitalization)
  Sender: FDA-Public Use
  Company Number: B0667755A

PATIENT
  Sex: Female
  Weight: 51 kg

DRUGS (16)
  1. ALKERAN [Suspect]
     Indication: CORD BLOOD TRANSPLANT THERAPY
     Dosage: 40MG PER DAY
     Route: 042
     Dates: start: 20090922, end: 20090923
  2. FLUDARA [Suspect]
     Indication: CORD BLOOD TRANSPLANT THERAPY
     Dosage: 25MG PER DAY
     Route: 042
     Dates: start: 20090919, end: 20090923
  3. GRAN [Concomitant]
     Dates: start: 20090926, end: 20091021
  4. TACROLIMUS [Concomitant]
     Indication: IMMUNOSUPPRESSION
     Dosage: 1.02MG PER DAY
     Route: 065
     Dates: start: 20090924
  5. ADENOSINE [Concomitant]
     Dosage: 250MG PER DAY
     Dates: start: 20091104, end: 20091221
  6. COTRIM [Concomitant]
     Dosage: 4IUAX PER DAY
     Route: 048
     Dates: start: 20090915, end: 20090923
  7. CIPROFLOXACIN HCL [Concomitant]
     Dosage: 600MG PER DAY
     Route: 048
     Dates: start: 20090918, end: 20091010
  8. FUNGUARD [Concomitant]
     Dosage: 50MG PER DAY
     Route: 042
     Dates: start: 20090925, end: 20091006
  9. FULCALIQ [Concomitant]
     Dosage: 903ML PER DAY
     Route: 042
     Dates: start: 20090924, end: 20090925
  10. FULCALIQ [Concomitant]
     Dosage: 1003ML PER DAY
     Route: 042
     Dates: start: 20090926, end: 20090930
  11. MAXIPIME [Concomitant]
     Dosage: 4G PER DAY
     Route: 042
     Dates: start: 20090930, end: 20091005
  12. FULCALIQ [Concomitant]
     Dosage: 1013ML PER DAY
     Route: 042
     Dates: start: 20091001, end: 20091018
  13. MODACIN [Concomitant]
     Dosage: 4G PER DAY
     Route: 042
     Dates: start: 20091006, end: 20091008
  14. CIPROFLOXACIN HCL [Concomitant]
     Dosage: 600MG PER DAY
     Route: 042
     Dates: start: 20091005, end: 20091013
  15. ITRIZOLE [Concomitant]
     Dosage: 200MG PER DAY
     Route: 042
     Dates: start: 20091006, end: 20091013
  16. VALGANCICLOVIR HCL [Concomitant]
     Dosage: 900MG PER DAY
     Route: 048
     Dates: start: 20100128

REACTIONS (3)
  - CYTOMEGALOVIRUS INFECTION [None]
  - PYREXIA [None]
  - SEPSIS [None]
